FAERS Safety Report 13984867 (Version 9)
Quarter: 2018Q1

REPORT INFORMATION
  Report Type: Report from Study
  Country: None (occurrence: ES)
  Receive Date: 20170918
  Receipt Date: 20180110
  Transmission Date: 20180508
  Serious: Yes (Other)
  Sender: FDA-Public Use
  Company Number: ES-ABBVIE-17K-144-2104899-00

PATIENT
  Sex: Male
  Weight: 63.9 kg

DRUGS (11)
  1. PAROXETINE. [Concomitant]
     Active Substance: PAROXETINE
     Indication: PRODUCT USED FOR UNKNOWN INDICATION
  2. DUODOPA [Suspect]
     Active Substance: CARBIDOPA\LEVODOPA
     Dosage: MORNING DOSE CHANGED FROM 5.3 TO 5.1 ML
     Route: 050
     Dates: start: 2017, end: 2017
  3. SINEMET [Suspect]
     Active Substance: CARBIDOPA\LEVODOPA
     Indication: PARKINSON^S DISEASE
     Route: 048
  4. MIRTAZAPINE. [Concomitant]
     Active Substance: MIRTAZAPINE
     Indication: PRODUCT USED FOR UNKNOWN INDICATION
  5. DUODOPA [Suspect]
     Active Substance: CARBIDOPA\LEVODOPA
     Indication: PARKINSON^S DISEASE
     Dosage: MORNING DOSE 18 ML
     Route: 050
     Dates: end: 20170519
  6. NEUPRO [Concomitant]
     Active Substance: ROTIGOTINE
     Indication: NERVOUS SYSTEM DISORDER
     Route: 061
  7. DUODOPA [Suspect]
     Active Substance: CARBIDOPA\LEVODOPA
     Dosage: MORNING DOSE: FROM 18ML TO17ML
     Route: 050
     Dates: start: 20170519, end: 2017
  8. DUODOPA [Suspect]
     Active Substance: CARBIDOPA\LEVODOPA
     Dosage: MORNING DOSE CHANGED FROM 17 ML TO 16 ML
     Route: 050
     Dates: start: 2017, end: 2017
  9. DUODOPA [Suspect]
     Active Substance: CARBIDOPA\LEVODOPA
     Dosage: MORNING DOSE: 16 ML,CONTINUOUS DOSE: 5.1 ML
     Route: 050
     Dates: start: 2017, end: 20171124
  10. DUODOPA [Suspect]
     Active Substance: CARBIDOPA\LEVODOPA
     Dosage: MORNING DOSE: 15.5 ML,CONTINUOUS DOSE: 5  ML
     Route: 050
     Dates: start: 20171124
  11. NEUPRO [Concomitant]
     Active Substance: ROTIGOTINE
     Indication: MOOD ALTERED

REACTIONS (8)
  - Decreased appetite [Recovered/Resolved]
  - Dyskinesia [Recovered/Resolved]
  - Vomiting [Recovered/Resolved]
  - Hypophagia [Recovering/Resolving]
  - Restlessness [Recovered/Resolved]
  - Depression [Unknown]
  - Anxiety [Unknown]
  - Weight decreased [Recovered/Resolved]

NARRATIVE: CASE EVENT DATE: 2017
